FAERS Safety Report 14687122 (Version 2)
Quarter: 2018Q2

REPORT INFORMATION
  Report Type: Spontaneous
  Country: US (occurrence: US)
  Receive Date: 20180328
  Receipt Date: 20180501
  Transmission Date: 20180711
  Serious: No
  Sender: FDA-Public Use
  Company Number: US-B.I. PHARMACEUTICALS,INC./RIDGEFIELD-2018-BI-016013

PATIENT
  Age: 90 Year
  Sex: Male

DRUGS (1)
  1. COMBIVENT [Suspect]
     Active Substance: ALBUTEROL SULFATE\IPRATROPIUM BROMIDE
     Indication: ASTHMA
     Dosage: STRNGTH: 20MCG/100MCG;FRMLATION:INHLTIONSPRYADMNSTRTIONCRRECT?NOACTION TAKEN: DOSE NOT CHANGED
     Route: 055
     Dates: start: 2017

REACTIONS (3)
  - Accidental exposure to product [Recovered/Resolved]
  - Off label use [Unknown]
  - Product quality issue [Unknown]

NARRATIVE: CASE EVENT DATE: 2017
